FAERS Safety Report 5242339-6 (Version None)
Quarter: 2007Q1

REPORT INFORMATION
  Report Type: 
  Country: None (occurrence: None)
  Receive Date: 20070216
  Receipt Date: 20070216
  Transmission Date: 20070707
  Serious: Yes (Hospitalization)
  Sender: FDA-Public Use
  Company Number: None

PATIENT
  Age: 44 Year
  Sex: Male

DRUGS (3)
  1. WARFARIN SODIUM [Suspect]
     Indication: DEEP VEIN THROMBOSIS
     Dosage: 15 MG M W F + 10 MG OTHER DAYS
     Dates: start: 20040501
  2. CIPRO [Suspect]
     Indication: INFECTION
     Dosage: OUTSIDE RX
  3. DILANTIN [Concomitant]

REACTIONS (1)
  - HAEMOPTYSIS [None]
